FAERS Safety Report 7932116-7 (Version None)
Quarter: 2011Q4

REPORT INFORMATION
  Report Type: 
  Country: None (occurrence: None)
  Receive Date: 20111121
  Receipt Date: 20110701
  Transmission Date: 20120403
  Serious: No
  Sender: FDA-Public Use
  Company Number: US-AMGEN-USASP2011033948

PATIENT
  Age: 53 Year
  Sex: Female

DRUGS (1)
  1. ENBREL [Suspect]
     Indication: RHEUMATOID ARTHRITIS
     Dosage: 50 MG, QWK
     Dates: start: 20050505

REACTIONS (9)
  - MALAISE [None]
  - INFLUENZA LIKE ILLNESS [None]
  - ARTHRALGIA [None]
  - PRURITUS [None]
  - RASH PAPULAR [None]
  - JOINT SWELLING [None]
  - PAIN [None]
  - INJECTION SITE PAIN [None]
  - RASH [None]
